FAERS Safety Report 8297050-4 (Version None)
Quarter: 2012Q2

REPORT INFORMATION
  Report Type: 
  Country: None (occurrence: None)
  Receive Date: 20120416
  Receipt Date: 20120330
  Transmission Date: 20120825
  Serious: Yes (Hospitalization, Disabling)
  Sender: FDA-Public Use
  Company Number: TCI2012A00866

PATIENT
  Age: 80 Year
  Sex: Female

DRUGS (6)
  1. AMARYL [Concomitant]
  2. LENDORM [Concomitant]
  3. ASPIRIN [Concomitant]
  4. ACTOS [Suspect]
     Indication: DIABETES MELLITUS
     Dosage: 7.5 MG (7.5 MG, 1 IN 1 D), PER ORAL
     Route: 048
     Dates: start: 20090327
  5. ACTOS [Suspect]
     Indication: DIABETES MELLITUS
     Dosage: 7.5 MG (7.5 MG, 1 IN 1 D), PER ORAL
     Route: 048
     Dates: start: 20090302, end: 20090326
  6. LANSOPRAZOLE [Concomitant]

REACTIONS (5)
  - TRANSITIONAL CELL CARCINOMA [None]
  - HYDRONEPHROSIS [None]
  - HAEMATURIA [None]
  - OEDEMA [None]
  - URETERIC CANCER [None]
